FAERS Safety Report 18841453 (Version 1)
Quarter: 2021Q1

REPORT INFORMATION
  Report Type: Spontaneous
  Country: TW (occurrence: TW)
  Receive Date: 20210204
  Receipt Date: 20210204
  Transmission Date: 20210419
  Serious: Yes (Hospitalization)
  Sender: FDA-Public Use
  Company Number: TW-LEADINGPHARMA-TW-2020LEALIT00017

PATIENT
  Age: 20 Year
  Sex: Female

DRUGS (6)
  1. FOLIC ACID TABLETS USP [Suspect]
     Active Substance: FOLIC ACID
     Indication: IMMUNE THROMBOCYTOPENIA
  2. PREDNISOLONE. [Suspect]
     Active Substance: PREDNISOLONE
     Indication: IMMUNE THROMBOCYTOPENIA
     Route: 065
  3. DANAZOL. [Suspect]
     Active Substance: DANAZOL
     Indication: IMMUNE THROMBOCYTOPENIA
  4. MAGNESIUM OXIDE. [Suspect]
     Active Substance: MAGNESIUM OXIDE
     Indication: IMMUNE THROMBOCYTOPENIA
     Route: 065
  5. COLCHICINE. [Suspect]
     Active Substance: COLCHICINE
     Indication: IMMUNE THROMBOCYTOPENIA
     Route: 065
  6. FAMOTIDINE. [Suspect]
     Active Substance: FAMOTIDINE
     Indication: IMMUNE THROMBOCYTOPENIA

REACTIONS (1)
  - Toxic epidermal necrolysis [Recovered/Resolved]
